FAERS Safety Report 12953078 (Version 2)
Quarter: 2016Q4

REPORT INFORMATION
  Report Type: Report from Study
  Country: US (occurrence: US)
  Receive Date: 20161117
  Receipt Date: 20161201
  Transmission Date: 20170207
  Serious: Yes (Other)
  Sender: FDA-Public Use
  Company Number: US-ACTELION-A-US2016-145507

PATIENT
  Age: 9 Year
  Sex: Male

DRUGS (10)
  1. LOTRIMIN AF ANTIFUNGAL [Concomitant]
     Active Substance: MICONAZOLE NITRATE
  2. FLONASE [Concomitant]
     Active Substance: FLUTICASONE PROPIONATE
  3. ALBUTEROL. [Concomitant]
     Active Substance: ALBUTEROL
  4. ADCIRCA [Concomitant]
     Active Substance: TADALAFIL
  5. PULMICORT TURBUHALER [Concomitant]
     Active Substance: BUDESONIDE
  6. REGLAN [Concomitant]
     Active Substance: METOCLOPRAMIDE HYDROCHLORIDE
  7. LASIX [Concomitant]
     Active Substance: FUROSEMIDE
  8. KEFLEX [Concomitant]
     Active Substance: CEPHALEXIN
  9. TRACLEER [Suspect]
     Active Substance: BOSENTAN
     Indication: PULMONARY ARTERIAL HYPERTENSION
     Dosage: 46.875 MG, BID
     Route: 048
     Dates: start: 20141023
  10. REMODULIN [Suspect]
     Active Substance: TREPROSTINIL
     Indication: PULMONARY ARTERIAL HYPERTENSION
     Dosage: 47 NG/KG, UNK
     Route: 041
     Dates: start: 20160226

REACTIONS (3)
  - Spinal meningeal cyst [Unknown]
  - Tooth extraction [Unknown]
  - Hepatic enzyme increased [Unknown]

NARRATIVE: CASE EVENT DATE: 201611
